FAERS Safety Report 7230028-8 (Version None)
Quarter: 2011Q1

REPORT INFORMATION
  Report Type: 
  Country: None (occurrence: None)
  Receive Date: 20110118
  Receipt Date: 20101123
  Transmission Date: 20110831
  Serious: Yes (Hospitalization)
  Sender: FDA-Public Use
  Company Number: SE-AMGEN-SWECT2010001742

PATIENT

DRUGS (3)
  1. METHOTREXATE [Concomitant]
  2. PREDNISOLONE [Concomitant]
  3. ETANERCEPT [Suspect]
     Indication: RHEUMATOID ARTHRITIS
     Dosage: UNK
     Dates: start: 20040129, end: 20060401

REACTIONS (1)
  - BREAST CANCER METASTATIC [None]
